FAERS Safety Report 15540344 (Version 1)
Quarter: 2018Q4

REPORT INFORMATION
  Report Type: Spontaneous
  Country: US (occurrence: US)
  Receive Date: 20181022
  Receipt Date: 20181022
  Transmission Date: 20190205
  Serious: Yes (Hospitalization)
  Sender: FDA-Public Use
  Company Number: None

PATIENT
  Age: 58 Year
  Sex: Male

DRUGS (3)
  1. HUMIRA [Suspect]
     Active Substance: ADALIMUMAB
     Indication: PSORIATIC ARTHROPATHY
     Dosage: ?          OTHER FREQUENCY:EVERY OTHER WEEK;?
     Route: 058
     Dates: start: 20170123
  2. DICLOFENAC [Concomitant]
     Active Substance: DICLOFENAC
  3. ATORVASTTIN [Concomitant]

REACTIONS (2)
  - Therapy cessation [None]
  - Functional gastrointestinal disorder [None]

NARRATIVE: CASE EVENT DATE: 20181001
